FAERS Safety Report 6889663-9 (Version None)
Quarter: 2010Q3

REPORT INFORMATION
  Report Type: 
  Country: None (occurrence: None)
  Receive Date: 20100730
  Receipt Date: 20080630
  Transmission Date: 20110219
  Serious: No
  Sender: FDA-Public Use
  Company Number: US-PFIZER INC-2008028065

PATIENT
  Sex: Male
  Weight: 72.727 kg

DRUGS (3)
  1. LIPITOR [Suspect]
     Indication: BLOOD CHOLESTEROL INCREASED
     Dates: start: 20060101
  2. MONTELUKAST SODIUM [Concomitant]
     Indication: ASTHMA
  3. MONTELUKAST SODIUM [Concomitant]
     Indication: HYPERSENSITIVITY

REACTIONS (1)
  - BLOOD CHOLESTEROL INCREASED [None]
